FAERS Safety Report 11078964 (Version 1)
Quarter: 2015Q2

REPORT INFORMATION
  Report Type: Spontaneous
  Country: FR (occurrence: FR)
  Receive Date: 20150430
  Receipt Date: 20150430
  Transmission Date: 20150821
  Serious: Yes (Other)
  Sender: FDA-Public Use
  Company Number: FR-ABBVIE-15P-056-1383173-00

PATIENT
  Age: 58 Year
  Sex: Male

DRUGS (11)
  1. COAPROVEL [Concomitant]
     Active Substance: HYDROCHLOROTHIAZIDE\IRBESARTAN
     Indication: PRODUCT USED FOR UNKNOWN INDICATION
  2. IMOVANE [Concomitant]
     Active Substance: ZOPICLONE
     Indication: PRODUCT USED FOR UNKNOWN INDICATION
  3. SINEMET [Concomitant]
     Active Substance: CARBIDOPA\LEVODOPA
     Indication: PRODUCT USED FOR UNKNOWN INDICATION
  4. XANAX [Concomitant]
     Active Substance: ALPRAZOLAM
     Indication: PRODUCT USED FOR UNKNOWN INDICATION
     Dates: end: 20141007
  5. LANSOYL [Concomitant]
     Active Substance: MINERAL OIL
     Indication: PRODUCT USED FOR UNKNOWN INDICATION
  6. XEROQUEL [Suspect]
     Active Substance: QUETIAPINE FUMARATE
     Indication: BIPOLAR DISORDER
     Dosage: EXTENDED RELEASE TABLET
     Route: 048
     Dates: end: 20141003
  7. MIRTAZAPINE. [Suspect]
     Active Substance: MIRTAZAPINE
     Indication: BIPOLAR DISORDER
     Route: 048
  8. TAHOR [Concomitant]
     Active Substance: ATORVASTATIN CALCIUM
     Indication: PRODUCT USED FOR UNKNOWN INDICATION
  9. KARDEGIC [Concomitant]
     Active Substance: ASPIRIN LYSINE
     Indication: PRODUCT USED FOR UNKNOWN INDICATION
  10. DEPAKOTE [Suspect]
     Active Substance: DIVALPROEX SODIUM
     Indication: BIPOLAR DISORDER
     Route: 048
  11. METFORMIN [Concomitant]
     Active Substance: METFORMIN HYDROCHLORIDE
     Indication: PRODUCT USED FOR UNKNOWN INDICATION

REACTIONS (1)
  - Extrapyramidal disorder [Recovering/Resolving]

NARRATIVE: CASE EVENT DATE: 201409
